FAERS Safety Report 6894909-7 (Version None)
Quarter: 2010Q3

REPORT INFORMATION
  Report Type: 
  Country: None (occurrence: None)
  Receive Date: 20100728
  Receipt Date: 20100714
  Transmission Date: 20110219
  Serious: Yes (Other)
  Sender: FDA-Public Use
  Company Number: 1000013545

PATIENT
  Age: 18 Year
  Sex: Male

DRUGS (5)
  1. ESCITALOPRAM [Suspect]
     Indication: OBSESSIVE-COMPULSIVE DISORDER
     Dosage: 7.5 MG (7.5 MG, 1 IN 1 D), ORAL, 15 MG (15 MG, 1 IN 1 D), ORAL, 30 MG (15 MG, 2 IN 1 D), ORAL
     Route: 048
     Dates: start: 20100401, end: 20100401
  2. ESCITALOPRAM [Suspect]
     Indication: OBSESSIVE-COMPULSIVE DISORDER
     Dosage: 7.5 MG (7.5 MG, 1 IN 1 D), ORAL, 15 MG (15 MG, 1 IN 1 D), ORAL, 30 MG (15 MG, 2 IN 1 D), ORAL
     Route: 048
     Dates: start: 20100401, end: 20100401
  3. ESCITALOPRAM [Suspect]
     Indication: OBSESSIVE-COMPULSIVE DISORDER
     Dosage: 7.5 MG (7.5 MG, 1 IN 1 D), ORAL, 15 MG (15 MG, 1 IN 1 D), ORAL, 30 MG (15 MG, 2 IN 1 D), ORAL
     Route: 048
     Dates: start: 20100401
  4. METHOTREXATE [Concomitant]
  5. FOLIC ACID [Concomitant]

REACTIONS (6)
  - DYSURIA [None]
  - EJACULATION DELAYED [None]
  - NOCTURIA [None]
  - OVERDOSE [None]
  - POLYURIA [None]
  - PROSTATIC DISORDER [None]
